FAERS Safety Report 12182542 (Version 2)
Quarter: 2016Q1

REPORT INFORMATION
  Report Type: Spontaneous
  Country: ES (occurrence: ES)
  Receive Date: 20160316
  Receipt Date: 20160324
  Transmission Date: 20160526
  Serious: Yes (Other)
  Sender: FDA-Public Use
  Company Number: ES-GLAXOSMITHKLINE-ES2016032717

PATIENT
  Age: 93 Year
  Sex: Female

DRUGS (13)
  1. LEVOFLOXACIN. [Suspect]
     Active Substance: LEVOFLOXACIN
     Route: 048
     Dates: start: 20150618, end: 20150623
  2. PREDNISONA [Suspect]
     Active Substance: PREDNISONE
     Indication: HYPOXIA
     Dosage: 30-0-20
     Route: 048
     Dates: start: 20150618, end: 20150625
  3. SEGURIL [Concomitant]
     Active Substance: FUROSEMIDE
     Indication: CARDIAC FAILURE
     Route: 048
  4. LEVEMIR [Concomitant]
     Active Substance: INSULIN DETEMIR
     Indication: DIABETES MELLITUS
     Route: 065
  5. SEGURIL [Suspect]
     Active Substance: FUROSEMIDE
     Indication: CARDIAC FAILURE
     Route: 048
     Dates: start: 20150618, end: 20150619
  6. PANTOPRAZOLE [Suspect]
     Active Substance: PANTOPRAZOLE SODIUM
     Indication: PROPHYLAXIS
     Dosage: 20 MG, QD
     Route: 048
     Dates: start: 20150618
  7. SERETIDE [Suspect]
     Active Substance: FLUTICASONE FUROATE\SALMETEROL XINAFOATE
     Indication: HYPOXIA
     Route: 055
     Dates: start: 20150619, end: 20150625
  8. SINTROM [Suspect]
     Active Substance: ACENOCOUMAROL
     Indication: ATRIAL FIBRILLATION
     Dosage: SEGUN INR
     Route: 048
     Dates: end: 20150624
  9. EZETROL [Concomitant]
     Active Substance: EZETIMIBE
     Indication: HYPERCHOLESTEROLAEMIA
     Route: 048
  10. DOXIUM FUERTE [Concomitant]
     Indication: PERIPHERAL VENOUS DISEASE
     Route: 048
  11. PARACETAMOL [Suspect]
     Active Substance: ACETAMINOPHEN
     Indication: PYREXIA
     Dosage: 1 G, UNK
     Route: 048
     Dates: start: 20150618, end: 20150701
  12. VENTOLIN [Suspect]
     Active Substance: ALBUTEROL SULFATE
     Indication: HYPOXIA
     Dosage: 2 INH SI PRECISA
     Route: 055
     Dates: start: 20150619, end: 20150625
  13. SEVIKAR [Concomitant]
     Active Substance: AMLODIPINE BESYLATE\OLMESARTAN MEDOXOMIL
     Indication: HYPERTENSION
     Route: 048

REACTIONS (1)
  - Neutropenia [Recovered/Resolved]

NARRATIVE: CASE EVENT DATE: 20150623
